FAERS Safety Report 18253951 (Version 2)
Quarter: 2020Q3

REPORT INFORMATION
  Report Type: Spontaneous
  Country: US (occurrence: US)
  Receive Date: 20200910
  Receipt Date: 20200924
  Transmission Date: 20201103
  Serious: Yes (Other)
  Sender: FDA-Public Use
  Company Number: US-ASTRAZENECA-2020SF13724

PATIENT
  Age: 61 Year
  Sex: Male
  Weight: 79.4 kg

DRUGS (8)
  1. CRESTOR [Suspect]
     Active Substance: ROSUVASTATIN CALCIUM
     Indication: STENT PLACEMENT
     Route: 048
  2. CRESTOR [Suspect]
     Active Substance: ROSUVASTATIN CALCIUM
     Indication: MYOCARDIAL INFARCTION
     Dosage: GENERIC
     Route: 048
  3. BRILINTA [Suspect]
     Active Substance: TICAGRELOR
     Indication: TINNITUS
     Route: 048
     Dates: start: 2019
  4. CRESTOR [Suspect]
     Active Substance: ROSUVASTATIN CALCIUM
     Indication: MYOCARDIAL INFARCTION
     Route: 048
  5. CRESTOR [Suspect]
     Active Substance: ROSUVASTATIN CALCIUM
     Indication: MYOCARDIAL INFARCTION
     Route: 048
     Dates: end: 2019
  6. CRESTOR [Suspect]
     Active Substance: ROSUVASTATIN CALCIUM
     Indication: STENT PLACEMENT
     Route: 048
     Dates: end: 2019
  7. PLAVIX [Suspect]
     Active Substance: CLOPIDOGREL BISULFATE
     Indication: STENT PLACEMENT
     Route: 048
  8. CRESTOR [Suspect]
     Active Substance: ROSUVASTATIN CALCIUM
     Indication: STENT PLACEMENT
     Dosage: GENERIC
     Route: 048

REACTIONS (28)
  - Nephrolithiasis [Unknown]
  - Blood glucose increased [Unknown]
  - Confusional state [Unknown]
  - Back pain [Unknown]
  - Intervertebral disc injury [Unknown]
  - Fall [Unknown]
  - Feeling abnormal [Unknown]
  - Gait disturbance [Unknown]
  - Glycosylated haemoglobin abnormal [Unknown]
  - Hypertension [Unknown]
  - Pain in extremity [Recovering/Resolving]
  - Myocardial infarction [Recovered/Resolved]
  - Dehydration [Unknown]
  - Musculoskeletal stiffness [Unknown]
  - Hernia [Unknown]
  - Hyperhidrosis [Unknown]
  - Limb discomfort [Recovering/Resolving]
  - Drug hypersensitivity [Unknown]
  - Intentional product misuse [Unknown]
  - Tinnitus [Unknown]
  - Impaired work ability [Unknown]
  - Mobility decreased [Unknown]
  - Fear [Unknown]
  - Arthralgia [Unknown]
  - Arterial disorder [Unknown]
  - Fatigue [Unknown]
  - Insomnia [Recovered/Resolved]
  - Myalgia [Unknown]

NARRATIVE: CASE EVENT DATE: 2018
